FAERS Safety Report 6677589-5 (Version None)
Quarter: 2010Q2

REPORT INFORMATION
  Report Type: 
  Country: None (occurrence: None)
  Receive Date: 20100412
  Receipt Date: 20100412
  Transmission Date: 20101027
  Serious: Yes (Hospitalization)
  Sender: FDA-Public Use
  Company Number: US-ROXANE LABORATORIES, INC.-2010-RO-00409RO

PATIENT
  Sex: Female

DRUGS (14)
  1. PREDNISOLONE [Suspect]
     Indication: PAIN
     Dosage: 1 MG
     Route: 048
     Dates: start: 20091201, end: 20100101
  2. PREDNISOLONE [Suspect]
     Indication: POLYMYALGIA RHEUMATICA
     Dosage: 2 MG
     Route: 048
     Dates: start: 20091101, end: 20091201
  3. PREDNISOLONE [Suspect]
     Dosage: 3 MG
     Route: 048
     Dates: start: 20091001, end: 20091101
  4. PREDNISOLONE [Suspect]
     Dosage: 4 MG
     Route: 048
     Dates: start: 20090901, end: 20091001
  5. PREDNISOLONE [Suspect]
     Dosage: 1 MG
     Route: 048
     Dates: start: 20090601, end: 20090701
  6. PREDNISOLONE [Suspect]
     Dosage: 2 MG
     Route: 048
     Dates: start: 20090501, end: 20090601
  7. PREDNISOLONE [Suspect]
     Dosage: 3 MG
     Route: 048
     Dates: start: 20090401, end: 20090501
  8. PREDNISOLONE [Suspect]
     Dosage: 4 MG
     Route: 048
     Dates: start: 20090301, end: 20090401
  9. PREDNISOLONE [Suspect]
     Dosage: 5 MG
     Route: 048
     Dates: start: 20090901
  10. PREDNISOLONE [Suspect]
     Dosage: 10 MG
     Route: 048
     Dates: start: 20090701, end: 20090901
  11. PREDNISOLONE [Suspect]
     Dosage: 5 MG
     Route: 048
     Dates: start: 20090301, end: 20090701
  12. PREDNISOLONE [Suspect]
     Dosage: 10 MG
     Route: 048
     Dates: start: 20080301, end: 20090301
  13. LEVAQUIN [Suspect]
     Indication: BRONCHITIS
     Route: 042
     Dates: start: 20100101, end: 20100101
  14. LEVAQUIN [Suspect]
     Route: 048
     Dates: start: 20100101

REACTIONS (4)
  - ABASIA [None]
  - BRONCHITIS [None]
  - MUSCULAR WEAKNESS [None]
  - TENDON PAIN [None]
